FAERS Safety Report 5766638-4 (Version None)
Quarter: 2008Q2

REPORT INFORMATION
  Report Type: 
  Country: None (occurrence: None)
  Receive Date: 20080609
  Receipt Date: 20080530
  Transmission Date: 20081010
  Serious: Yes (Death)
  Sender: FDA-Public Use
  Company Number: CIO08009950

PATIENT
  Sex: Male

DRUGS (1)
  1. PEPTO OR PEPTO-BISMOL, FORM/VERSION/FLAVOR UNKNOWN (BISMUTH SUBSALICYL [Suspect]
     Indication: GASTRIC DISORDER
     Dosage: ORAL
     Route: 048

REACTIONS (7)
  - DRUG ADMINISTRATION ERROR [None]
  - LABORATORY TEST ABNORMAL [None]
  - METAL POISONING [None]
  - NEPHROPATHY TOXIC [None]
  - NERVOUS SYSTEM DISORDER [None]
  - PARKINSONISM [None]
  - RENAL FAILURE [None]
